FAERS Safety Report 4850732-6 (Version None)
Quarter: 2005Q4

REPORT INFORMATION
  Report Type: 
  Country: None (occurrence: None)
  Receive Date: 20051208
  Receipt Date: 20051128
  Transmission Date: 20060501
  Serious: Yes (Other)
  Sender: FDA-Public Use
  Company Number: 2005162491

PATIENT
  Sex: Male
  Weight: 68.0396 kg

DRUGS (2)
  1. VIAGRA [Suspect]
     Dosage: ORAL
     Route: 048
     Dates: end: 20050301
  2. CIALIS [Concomitant]

REACTIONS (1)
  - BLINDNESS UNILATERAL [None]
